FAERS Safety Report 17161658 (Version 1)
Quarter: 2019Q4

REPORT INFORMATION
  Report Type: Report from Study
  Country: None (occurrence: BE)
  Receive Date: 20191217
  Receipt Date: 20191217
  Transmission Date: 20200122
  Serious: Yes (Other)
  Sender: FDA-Public Use
  Company Number: BE-ABBVIE-19K-013-2674656-00

PATIENT
  Sex: Male

DRUGS (1)
  1. HUMIRA [Suspect]
     Active Substance: ADALIMUMAB
     Indication: HIDRADENITIS
     Route: 058

REACTIONS (8)
  - Skin ulcer [Recovered/Resolved]
  - Abscess [Unknown]
  - Therapeutic product effect incomplete [Unknown]
  - Infective tenosynovitis [Unknown]
  - Large intestine polyp [Unknown]
  - Arthralgia [Unknown]
  - Hiatus hernia [Unknown]
  - Hidradenitis [Recovering/Resolving]

NARRATIVE: CASE EVENT DATE: 2019
